FAERS Safety Report 5718881-8 (Version None)
Quarter: 2008Q2

REPORT INFORMATION
  Report Type: 
  Country: None (occurrence: None)
  Receive Date: 20080425
  Receipt Date: 20080421
  Transmission Date: 20081010
  Serious: Yes (Hospitalization)
  Sender: FDA-Public Use
  Company Number: ES-PFIZER INC-2008034575

PATIENT
  Age: 58 Year
  Sex: Female

DRUGS (4)
  1. VARENICLINE TABLETS [Suspect]
     Indication: SMOKING CESSATION THERAPY
     Dates: start: 20071101, end: 20080103
  2. LEXATIN [Concomitant]
  3. EUTIROX [Concomitant]
  4. PREVENCOR [Concomitant]
     Indication: HYPERCHOLESTEROLAEMIA

REACTIONS (1)
  - BRONCHITIS CHRONIC [None]
